FAERS Safety Report 5053273-9 (Version None)
Quarter: 2006Q3

REPORT INFORMATION
  Report Type: 
  Country: None (occurrence: None)
  Receive Date: 20060712
  Receipt Date: 20060626
  Transmission Date: 20061208
  Serious: Yes (Hospitalization)
  Sender: FDA-Public Use
  Company Number: DSA_28386_2006

PATIENT
  Age: 38 Year
  Sex: Female

DRUGS (4)
  1. TAVOR [Suspect]
     Dosage: 7.5 MG Q DAY PO
     Route: 048
     Dates: start: 20060220, end: 20060402
  2. HALDOL [Suspect]
     Dosage: 20 MG Q DAY PO
     Route: 048
     Dates: start: 20060220, end: 20060407
  3. AKINETON [Concomitant]
  4. JODTHYROX [Concomitant]

REACTIONS (8)
  - BACK PAIN [None]
  - DEEP VEIN THROMBOSIS [None]
  - PAIN [None]
  - PAIN IN EXTREMITY [None]
  - PNEUMONIA [None]
  - PULMONARY EMBOLISM [None]
  - PULMONARY INFARCTION [None]
  - SEDATION [None]
